FAERS Safety Report 8779471 (Version 2)
Quarter: 2012Q4

REPORT INFORMATION
  Report Type: Report from Study
  Country: CZ (occurrence: CZ)
  Receive Date: 20120912
  Receipt Date: 20120912
  Transmission Date: 20130627
  Serious: Yes (Death, Hospitalization)
  Sender: FDA-Public Use
  Company Number: CZ-BAYER-201029374GPV

PATIENT
  Age: 78 Year
  Sex: Female
  Weight: 58 kg

DRUGS (12)
  1. SORAFENIB (RAF KINASE INHIBITOR) [Suspect]
     Indication: HEPATIC NEOPLASM MALIGNANT
     Dosage: 800 mg (Daily Dose)
     Route: 048
     Dates: start: 20100420, end: 20100602
  2. SORAFENIB (RAF KINASE INHIBITOR) [Suspect]
     Indication: HEPATIC NEOPLASM MALIGNANT
     Dosage: 400 mg Daily Dose
     Route: 048
     Dates: start: 20100603, end: 20100617
  3. CERUCAL [Concomitant]
     Indication: NAUSEA
     Dosage: 30 mg (Daily Dose), QD, oral
     Route: 048
     Dates: start: 2009, end: 20100616
  4. ENALAPRIL [Concomitant]
     Indication: HYPERTENSION
     Dosage: 10 mg (Daily Dose), QD, oral
     Route: 048
     Dates: start: 2008, end: 20100724
  5. FURON [Concomitant]
     Indication: HYPERTENSION
     Dosage: 40 mg (Daily Dose), QD, oral
     Route: 048
     Dates: start: 2008, end: 20100724
  6. HELICID [Concomitant]
     Indication: GASTRITIS
     Dosage: 40 mg (Daily Dose), QD
     Route: 048
     Dates: start: 2009, end: 20100606
  7. KALIUM CHLORATUM [Concomitant]
     Indication: HYPERTENSION
     Dosage: 1000 mg (Daily Dose), QD, oral
     Route: 048
     Dates: start: 2008, end: 20100616
  8. VEROSPIRON [Concomitant]
     Indication: HYPERTENSION
     Dosage: 50 mg (Daily Dose), QD, oral
     Route: 048
     Dates: start: 20100622, end: 20100724
  9. OFLOXIN [Concomitant]
     Dosage: 200 mg, BID
     Route: 048
     Dates: start: 20100622, end: 20100628
  10. FUROSEMIDUM [Concomitant]
     Indication: HYPERTENSION
     Dosage: 80 mg (Daily Dose), , oral
     Route: 048
     Dates: start: 20100622
  11. FUROSEMIDUM [Concomitant]
     Indication: HYPERTENSION
     Dosage: 40 mg (Daily Dose), oral
     Route: 048
     Dates: start: 2008, end: 20100724
  12. OFLOXACINUM [Concomitant]
     Indication: CYSTITIS
     Dosage: 400 mg (Daily Dose)
     Route: 048
     Dates: start: 20100622, end: 20100628

REACTIONS (3)
  - Diarrhoea [Recovered/Resolved]
  - Cardiac failure [Fatal]
  - Malnutrition [Recovered/Resolved]
